FAERS Safety Report 14719181 (Version 1)
Quarter: 2018Q2

REPORT INFORMATION
  Report Type: Report from Study
  Country: CH (occurrence: CH)
  Receive Date: 20180405
  Receipt Date: 20180405
  Transmission Date: 20180711
  Serious: Yes (Other)
  Sender: FDA-Public Use
  Company Number: CH-ROCHE-2100834

PATIENT

DRUGS (3)
  1. MITOMYCIN C [Suspect]
     Active Substance: MITOMYCIN
     Indication: ANAL CANCER
     Dosage: 10-15 MG/M2 GIVEN ON THE DAY 1 AND ON THE DAY OF THE BEGINNING OF THE SEQUENTIAL BOOST
     Route: 065
  2. CAPECITABINE. [Suspect]
     Active Substance: CAPECITABINE
     Indication: ANAL CANCER
     Dosage: MONDAY TO FRIDAY
     Route: 065
  3. 5-FLUOROURACIL [Suspect]
     Active Substance: FLUOROURACIL
     Indication: ANAL CANCER
     Dosage: ON THE FIRST FIVE AND LAST FIVE DAYS OF RT
     Route: 065

REACTIONS (4)
  - Diarrhoea [Unknown]
  - Skin exfoliation [Unknown]
  - Erythema [Unknown]
  - Anal incontinence [Unknown]
